FAERS Safety Report 10269998 (Version 2)
Quarter: 2014Q3

REPORT INFORMATION
  Report Type: Spontaneous
  Country: US (occurrence: None)
  Receive Date: 20140626
  Receipt Date: 20140820
  Transmission Date: 20150326
  Serious: Yes (Other)
  Sender: FDA-Public Use
  Company Number: HA14-239-AE

PATIENT
  Age: 62 Year
  Sex: Female

DRUGS (4)
  1. PREDNISONE. [Concomitant]
     Active Substance: PREDNISONE
  2. GABAPENTIN. [Concomitant]
     Active Substance: GABAPENTIN
  3. TRAMADOL HCL [Suspect]
     Active Substance: TRAMADOL HYDROCHLORIDE
     Indication: FIBROMYALGIA
     Dosage: 1 TAB  Q6H-Q88, ORAL
     Route: 048
     Dates: start: 20140612, end: 20140617
  4. TRAMADOL HCL [Suspect]
     Active Substance: TRAMADOL HYDROCHLORIDE
     Indication: OSTEOARTHRITIS
     Dosage: 1 TAB  Q6H-Q88, ORAL
     Route: 048
     Dates: start: 20140612, end: 20140617

REACTIONS (6)
  - Chest pain [None]
  - Chest discomfort [None]
  - Pruritus [None]
  - Unevaluable event [None]
  - Angioedema [None]
  - Muscle spasms [None]

NARRATIVE: CASE EVENT DATE: 20140613
